FAERS Safety Report 6746905-8 (Version None)
Quarter: 2010Q2

REPORT INFORMATION
  Report Type: 
  Country: None (occurrence: None)
  Receive Date: 20100528
  Receipt Date: 20081031
  Transmission Date: 20101027
  Serious: No
  Sender: FDA-Public Use
  Company Number: US-ASTRAZENECA-2009SE14339

PATIENT
  Sex: Male

DRUGS (1)
  1. PRILOSEC OTC [Suspect]
     Indication: GASTROINTESTINAL ULCER
     Dosage: 1 TABLET, 2 /DAY FOR 84 DAYS
     Route: 048
     Dates: start: 20080807, end: 20081030

REACTIONS (2)
  - ANXIETY [None]
  - HYPERVENTILATION [None]
